FAERS Safety Report 11499889 (Version 1)
Quarter: 2015Q3

REPORT INFORMATION
  Report Type: Spontaneous
  Country: CN (occurrence: None)
  Receive Date: 20150910
  Receipt Date: 20150910
  Transmission Date: 20151125
  Serious: Yes (Other)
  Sender: FDA-Public Use
  Company Number: NL01PV15_39550

PATIENT
  Age: 88 Year
  Sex: Male

DRUGS (7)
  1. MEGESTROL (MEGESTROL) [Suspect]
     Active Substance: MEGESTROL
  2. UNKNOWN (TAMSULOSIN) UNKNOWN [Suspect]
     Active Substance: TAMSULOSIN
  3. BICALUTAMIDE. [Suspect]
     Active Substance: BICALUTAMIDE
  4. PANTOPRAZOLE (PANTOPRAZOLE) [Suspect]
     Active Substance: PANTOPRAZOLE SODIUM
  5. CICLOSPORINE [Suspect]
     Active Substance: CYCLOSPORINE
     Indication: APLASIA PURE RED CELL
     Dates: start: 201306
  6. ISOSORBIDE DINITRATE (ISOSORBIDE DINITRATE) (ISOSORBIDE DINITRATE) [Suspect]
     Active Substance: ISOSORBIDE DINITRATE
  7. ATORVASTATIN (ATORVASTATIN) [Suspect]
     Active Substance: ATORVASTATIN
     Indication: RENAL ARTERY STENOSIS
     Dosage: EVERY NIGHT
     Dates: start: 2011

REACTIONS (2)
  - Myositis [None]
  - Drug interaction [None]
